FAERS Safety Report 18621467 (Version 3)
Quarter: 2021Q1

REPORT INFORMATION
  Report Type: Spontaneous
  Country: JP (occurrence: JP)
  Receive Date: 20201215
  Receipt Date: 20210125
  Transmission Date: 20210419
  Serious: No
  Sender: FDA-Public Use
  Company Number: JP-JNJFOC-20201208562

PATIENT

DRUGS (3)
  1. ONEDURO [Suspect]
     Active Substance: FENTANYL
     Indication: PRODUCT USED FOR UNKNOWN INDICATION
     Dosage: 25.00 MCG/HR
     Route: 062
  2. ONEDURO [Suspect]
     Active Substance: FENTANYL
  3. ONEDURO [Suspect]
     Active Substance: FENTANYL

REACTIONS (3)
  - Product packaging quantity issue [Unknown]
  - Inappropriate schedule of product administration [Unknown]
  - Off label use [Unknown]

NARRATIVE: CASE EVENT DATE: 20190709
